FAERS Safety Report 10110115 (Version 2)
Quarter: 2014Q3

REPORT INFORMATION
  Report Type: Spontaneous
  Country: US (occurrence: None)
  Receive Date: 20140421
  Receipt Date: 20140722
  Transmission Date: 20150326
  Serious: No
  Sender: FDA-Public Use
  Company Number: AEGR000369

PATIENT
  Age: 69 Year
  Sex: Male
  Weight: 86.2 kg

DRUGS (4)
  1. JUXTAPID [Suspect]
     Active Substance: LOMITAPIDE MESYLATE
     Indication: TYPE IIA HYPERLIPIDAEMIA
     Route: 048
     Dates: start: 201310, end: 20140316
  2. ZETIA [Concomitant]
     Active Substance: EZETIMIBE
  3. ATORVASTATIN (ATORVASTATIN) [Concomitant]
     Active Substance: ATORVASTATIN
  4. FISH OIL (FISH OIL) [Concomitant]
     Active Substance: FISH OIL

REACTIONS (2)
  - Diarrhoea [None]
  - Inappropriate schedule of drug administration [None]

NARRATIVE: CASE EVENT DATE: 201403
